FAERS Safety Report 9571121 (Version 5)
Quarter: 2013Q4

REPORT INFORMATION
  Report Type: Report from Study
  Country: US (occurrence: US)
  Receive Date: 20131001
  Receipt Date: 20131226
  Transmission Date: 20140711
  Serious: Yes (Death, Hospitalization, Disabling)
  Sender: FDA-Public Use
  Company Number: PHEH2013US020180

PATIENT
  Age: 81 Year
  Sex: Male

DRUGS (9)
  1. TASIGNA [Suspect]
     Indication: CHRONIC MYELOID LEUKAEMIA
     Dosage: 200 MG, BID
     Route: 048
     Dates: start: 20120730
  2. LEUPROLIDE ACE [Concomitant]
     Indication: PROSTATE CANCER METASTATIC
     Dosage: 225 MG, EVERY 3 MONTHS
     Route: 030
     Dates: start: 20070129
  3. LEUPROLIDE ACE [Concomitant]
     Dosage: 225 MG, EVERY 3 MONTHS
     Route: 030
     Dates: start: 20130906
  4. BICALUTAMIDE [Concomitant]
     Dosage: 1 DF, DAILY
     Route: 048
     Dates: start: 20010610
  5. MAGNESIUM CHLORIDE [Concomitant]
     Indication: HYPOMAGNESAEMIA
     Dates: start: 20120808
  6. TYLENOL [Concomitant]
     Dosage: 650 MG, PRN
     Dates: start: 2007
  7. PRINZIDE [Concomitant]
     Indication: MYOCARDIAL INFARCTION
  8. LOPRESSOR [Concomitant]
     Indication: HYPERTENSION
  9. CATAPRESS [Concomitant]
     Indication: HYPERTENSION

REACTIONS (7)
  - Death [Fatal]
  - Hypophagia [Unknown]
  - Decreased appetite [Not Recovered/Not Resolved]
  - Asthenia [Not Recovered/Not Resolved]
  - Failure to thrive [Not Recovered/Not Resolved]
  - Dehydration [Not Recovered/Not Resolved]
  - Urinary tract infection [Not Recovered/Not Resolved]
